FAERS Safety Report 12973480 (Version 1)
Quarter: 2016Q4

REPORT INFORMATION
  Report Type: Spontaneous
  Country: CN (occurrence: CN)
  Receive Date: 20161124
  Receipt Date: 20161124
  Transmission Date: 20170207
  Serious: Yes (Other)
  Sender: FDA-Public Use
  Company Number: CN-JNJFOC-20161119384

PATIENT

DRUGS (1)
  1. INFLIXIMAB, RECOMBINANT [Suspect]
     Active Substance: INFLIXIMAB
     Indication: ANKYLOSING SPONDYLITIS
     Dosage: ON WEEK 0, 2, 6 AND 8, AND THEN ONCE EVERY 8 WEEKS.
     Route: 042

REACTIONS (19)
  - Headache [Unknown]
  - Blood pressure increased [Unknown]
  - Pruritus [Unknown]
  - Chest pain [Unknown]
  - Pneumonia [Unknown]
  - Otitis media [Unknown]
  - Pulmonary tuberculosis [Unknown]
  - Nausea [Unknown]
  - Dizziness [Unknown]
  - Dyspnoea [Unknown]
  - Vision blurred [Unknown]
  - Nervous system disorder [Unknown]
  - Infusion related reaction [Unknown]
  - Pyrexia [Unknown]
  - Dermatitis allergic [Unknown]
  - Abdominal pain upper [Unknown]
  - Urinary tract infection [Unknown]
  - Rash [Unknown]
  - Palpitations [Unknown]
